FAERS Safety Report 25106864 (Version 1)
Quarter: 2025Q1

REPORT INFORMATION
  Report Type: Spontaneous
  Country: CN (occurrence: CN)
  Receive Date: 20250321
  Receipt Date: 20250321
  Transmission Date: 20250409
  Serious: Yes (Other)
  Sender: AMGEN
  Company Number: CN-AMGEN-CHNSP2025053400

PATIENT
  Age: 68 Year
  Sex: Male
  Weight: 68 kg

DRUGS (1)
  1. CARFILZOMIB [Suspect]
     Active Substance: CARFILZOMIB
     Indication: Neoplasm malignant
     Dosage: 48 MILLIGRAM, QD, ONCE A DAY
     Route: 040
     Dates: start: 20250228, end: 20250308

REACTIONS (1)
  - Myelosuppression [Unknown]

NARRATIVE: CASE EVENT DATE: 20250304
